FAERS Safety Report 9314264 (Version 1)
Quarter: 2013Q2

REPORT INFORMATION
  Report Type: Spontaneous
  Country: GB (occurrence: None)
  Receive Date: 20130522
  Receipt Date: 20130522
  Transmission Date: 20140414
  Serious: Yes (Other)
  Sender: FDA-Public Use
  Company Number: KAD201305-000553

PATIENT
  Age: 40 Year
  Sex: Female

DRUGS (3)
  1. RIBAVIRIN (RIBAVIRIN) [Suspect]
  2. PEGYLATED INTERFERON ALFA-2A [Suspect]
  3. VICTRELIS [Suspect]
     Indication: HEPATITIS C
     Route: 048
     Dates: start: 20121227, end: 20130219

REACTIONS (4)
  - Feeling abnormal [None]
  - Depressed mood [None]
  - Suicidal ideation [None]
  - Self-injurious ideation [None]
